FAERS Safety Report 23192522 (Version 7)
Quarter: 2024Q2

REPORT INFORMATION
  Report Type: Other
  Country: US (occurrence: US)
  Receive Date: 20231116
  Receipt Date: 20240603
  Transmission Date: 20240716
  Serious: Yes (Other)
  Sender: FDA-Public Use
  Company Number: US-TRAVERE-2023TVT00682

PATIENT
  Age: 54 Year
  Sex: Male

DRUGS (17)
  1. FILSPARI [Suspect]
     Active Substance: SPARSENTAN
     Indication: IgA nephropathy
     Dosage: 200 MG
     Route: 048
     Dates: start: 20230926
  2. FILSPARI [Suspect]
     Active Substance: SPARSENTAN
     Dosage: 400 MG
     Route: 048
     Dates: end: 202312
  3. D3-5000 [Concomitant]
  4. CARVEDILOL [Concomitant]
     Active Substance: CARVEDILOL
  5. VALSARTAN [Concomitant]
     Active Substance: VALSARTAN
  6. COENZYME Q10 [Concomitant]
     Active Substance: DIETARY SUPPLEMENT\UBIDECARENONE
  7. FISH OIL [Concomitant]
     Active Substance: FISH OIL
  8. WARFARIN SODIUM [Concomitant]
     Active Substance: WARFARIN SODIUM
  9. PREDNISONE [Concomitant]
     Active Substance: PREDNISONE
  10. ENVARSUS XR [Concomitant]
     Active Substance: TACROLIMUS
  11. MYFORTIC [Concomitant]
     Active Substance: MYCOPHENOLATE SODIUM
  12. ALPHA LIPOIC [Concomitant]
  13. LYSINE [Concomitant]
     Active Substance: LYSINE
  14. MAGNESIUM GLYCINATE [Concomitant]
     Active Substance: MAGNESIUM GLYCINATE
  15. FUROSEMIDE [Concomitant]
     Active Substance: FUROSEMIDE
  16. KRILL OIL [Concomitant]
     Active Substance: DIETARY SUPPLEMENT\KRILL OIL
  17. INOSITOL NIACINATE [Concomitant]
     Active Substance: INOSITOL NIACINATE

REACTIONS (6)
  - Pulmonary congestion [Not Recovered/Not Resolved]
  - Testicular swelling [Not Recovered/Not Resolved]
  - Contraindicated product prescribed [Unknown]
  - Weight increased [None]
  - Fluid retention [Not Recovered/Not Resolved]
  - Blood urea increased [Unknown]
